FAERS Safety Report 4996165-3 (Version None)
Quarter: 2006Q2

REPORT INFORMATION
  Report Type: 
  Country: None (occurrence: None)
  Receive Date: 20060504
  Receipt Date: 20060425
  Transmission Date: 20061013
  Serious: Yes (Other)
  Sender: FDA-Public Use
  Company Number: 2006-01620

PATIENT
  Age: 57 Year
  Sex: Male

DRUGS (1)
  1. FAMOTIDINE [Suspect]
     Indication: GASTRIC ULCER
     Dosage: 20 MG BID X 2 ORAL
     Route: 048

REACTIONS (1)
  - RETINOPATHY [None]
